FAERS Safety Report 20264560 (Version 1)
Quarter: 2021Q4

REPORT INFORMATION
  Report Type: Other
  Country: US (occurrence: None)
  Receive Date: 20211231
  Receipt Date: 20211231
  Transmission Date: 20220304
  Serious: Yes (Other)
  Sender: FDA-Public Use
  Company Number: US-ROCHE-2986912

PATIENT
  Sex: Male
  Weight: 80.358 kg

DRUGS (6)
  1. CELLCEPT [Suspect]
     Active Substance: MYCOPHENOLATE MOFETIL
     Indication: Osteoporosis prophylaxis
     Route: 048
  2. RITUXAN [Suspect]
     Active Substance: RITUXIMAB
     Indication: Pemphigus
     Dosage: AT DAY 0 AND 14 THEN EVERY 6 MONTH AS REQUIRED. 500MG/50ML
     Route: 042
  3. DAPSONE [Concomitant]
     Active Substance: DAPSONE
  4. PREDNISONE [Concomitant]
     Active Substance: PREDNISONE
  5. BENADRYL [Concomitant]
     Active Substance: DIPHENHYDRAMINE HYDROCHLORIDE
  6. SOLU-MEDROL [Concomitant]
     Active Substance: METHYLPREDNISOLONE SODIUM SUCCINATE

REACTIONS (5)
  - Chills [Recovered/Resolved with Sequelae]
  - Deafness [Unknown]
  - Tinnitus [Unknown]
  - Off label use [Unknown]
  - Off label use [Unknown]
